FAERS Safety Report 5710610-7 (Version None)
Quarter: 2008Q2

REPORT INFORMATION
  Report Type: 
  Country: None (occurrence: None)
  Receive Date: 20080415
  Receipt Date: 20080404
  Transmission Date: 20081010
  Serious: Yes (Hospitalization)
  Sender: FDA-Public Use
  Company Number: 2008000776

PATIENT
  Age: 74 Year
  Sex: Female
  Weight: 67.9 kg

DRUGS (3)
  1. TARCEVA [Suspect]
     Indication: OVARIAN CANCER
     Dosage: 150 MG, QD, ORAL
     Route: 048
     Dates: start: 20080215
  2. BEVACIZUMAB (INJECTION FOR INFUSION) [Suspect]
     Indication: OVARIAN CANCER
     Dosage: 680 MG, Q2W, INTRAVENOUS
     Route: 042
     Dates: start: 20080221
  3. COUMADIN [Concomitant]

REACTIONS (6)
  - ANAEMIA [None]
  - ASTHENIA [None]
  - BLOOD SODIUM DECREASED [None]
  - INTERNATIONAL NORMALISED RATIO INCREASED [None]
  - PLATELET COUNT INCREASED [None]
  - PROTHROMBIN TIME PROLONGED [None]
